FAERS Safety Report 4481717-X (Version None)
Quarter: 2004Q4

REPORT INFORMATION
  Report Type: 
  Country: None (occurrence: None)
  Receive Date: 20041021
  Receipt Date: 20041011
  Transmission Date: 20050328
  Serious: Yes (Hospitalization, Disabling)
  Sender: FDA-Public Use
  Company Number: US-MERCK-0410USA01687

PATIENT
  Sex: Female

DRUGS (3)
  1. VIOXX [Suspect]
     Indication: ARTHRITIS
     Route: 048
     Dates: start: 20040201, end: 20040930
  2. [THERAPY UNSPECIFIED] [Concomitant]
     Route: 065
  3. HYDROCORTISONE [Concomitant]
     Route: 065

REACTIONS (9)
  - ARTHRALGIA [None]
  - DIFFICULTY IN WALKING [None]
  - JOINT CREPITATION [None]
  - JOINT STIFFNESS [None]
  - MUSCULOSKELETAL STIFFNESS [None]
  - NECK PAIN [None]
  - OEDEMA PERIPHERAL [None]
  - PAIN IN JAW [None]
  - VISION BLURRED [None]
